FAERS Safety Report 5024734-3 (Version None)
Quarter: 2006Q2

REPORT INFORMATION
  Report Type: 
  Country: None (occurrence: None)
  Receive Date: 20060426
  Receipt Date: 20060210
  Transmission Date: 20061013
  Serious: Yes (Other)
  Sender: FDA-Public Use
  Company Number: 2006021824

PATIENT
  Age: 65 Year
  Sex: Female
  Weight: 63.5036 kg

DRUGS (7)
  1. LYRICA [Suspect]
     Indication: NECK PAIN
     Dosage: 150 MG (50 MG, 3 IN 1 D)
     Dates: start: 20060101
  2. DURAGESIC-100 [Concomitant]
  3. ATACAND [Concomitant]
  4. ATENOLOL [Concomitant]
  5. NORVASC [Concomitant]
  6. ESTRACE [Concomitant]
  7. DESYREL [Concomitant]

REACTIONS (2)
  - CONSTIPATION [None]
  - EYE PAIN [None]
